FAERS Safety Report 4745156-6 (Version None)
Quarter: 2005Q3

REPORT INFORMATION
  Report Type: 
  Country: None (occurrence: None)
  Receive Date: 20050815
  Receipt Date: 20050802
  Transmission Date: 20060218
  Serious: Yes (Life-Threatening, Hospitalization, Other)
  Sender: FDA-Public Use
  Company Number: DE-JNJFOC-20050800795

PATIENT
  Age: 51 Year
  Sex: Male
  Weight: 85 kg

DRUGS (2)
  1. DURAGESIC-100 [Suspect]
     Indication: PAIN
     Route: 062
  2. VELCADE [Concomitant]
     Indication: MULTIPLE MYELOMA
     Route: 042

REACTIONS (3)
  - FALL [None]
  - PULMONARY EMBOLISM [None]
  - SYNCOPE [None]
